FAERS Safety Report 23402250 (Version 3)
Quarter: 2024Q1

REPORT INFORMATION
  Report Type: Report from Study
  Country: US (occurrence: US)
  Receive Date: 20240115
  Receipt Date: 20240201
  Transmission Date: 20240409
  Serious: Yes (Other)
  Sender: FDA-Public Use
  Company Number: US-ABBVIE-5585222

PATIENT
  Age: 50 Year
  Sex: Female
  Weight: 95.254 kg

DRUGS (2)
  1. SKYRIZI [Suspect]
     Active Substance: RISANKIZUMAB-RZAA
     Indication: Psoriasis
     Dosage: MISSED DOSE
     Route: 058
  2. SKYRIZI [Suspect]
     Active Substance: RISANKIZUMAB-RZAA
     Dosage: RESTARTED ON 19 JAN 2024
     Route: 058
     Dates: start: 20240119

REACTIONS (6)
  - Spinal operation [Recovered/Resolved]
  - Nausea [Unknown]
  - Rhinorrhoea [Unknown]
  - Palmoplantar pustulosis [Recovering/Resolving]
  - Muscle spasms [Unknown]
  - Urticaria [Unknown]

NARRATIVE: CASE EVENT DATE: 20231129
